FAERS Safety Report 25711374 (Version 2)
Quarter: 2025Q3

REPORT INFORMATION
  Report Type: Spontaneous
  Country: US (occurrence: US)
  Receive Date: 20250821
  Receipt Date: 20250926
  Transmission Date: 20251021
  Serious: No
  Sender: INCYTE
  Company Number: US-EVENT-003917

PATIENT
  Age: 64 Year

DRUGS (1)
  1. OPZELURA [Suspect]
     Active Substance: RUXOLITINIB PHOSPHATE
     Indication: Product used for unknown indication
     Dosage: 1.5 PERCENT, BID (APPLY A THIN LAYER TO AFFECTED AREA(S) TWICE DAILY AS DIRECTED)
     Route: 065

REACTIONS (2)
  - COVID-19 [Unknown]
  - Rash [Unknown]
